FAERS Safety Report 4889317-4 (Version None)
Quarter: 2006Q1

REPORT INFORMATION
  Report Type: 
  Country: None (occurrence: None)
  Receive Date: 20060120
  Receipt Date: 20060120
  Transmission Date: 20060701
  Serious: Yes (Life-Threatening, Hospitalization, Other)
  Sender: FDA-Public Use
  Company Number: None

PATIENT
  Age: 38 Year
  Sex: Male
  Weight: 79.3795 kg

DRUGS (2)
  1. LEXAPRO [Suspect]
     Indication: DEPRESSION
     Dosage: 10 MG  ONCE DAILY  PO
     Route: 048
     Dates: start: 20030809, end: 20051012
  2. ALCOHOL [Concomitant]

REACTIONS (7)
  - ABNORMAL BEHAVIOUR [None]
  - ALCOHOLISM [None]
  - DIVORCED [None]
  - GASTRIC HAEMORRHAGE [None]
  - HALLUCINATION [None]
  - LEGAL PROBLEM [None]
  - OBSESSIVE-COMPULSIVE DISORDER [None]
